FAERS Safety Report 8339864-8 (Version None)
Quarter: 2012Q2

REPORT INFORMATION
  Report Type: 
  Country: None (occurrence: None)
  Receive Date: 20120507
  Receipt Date: 20120503
  Transmission Date: 20120825
  Serious: Yes (Death, Life-Threatening, Hospitalization, Other)
  Sender: FDA-Public Use
  Company Number: GB-PFIZER INC-2012054791

PATIENT
  Age: 74 Year
  Sex: Male
  Weight: 94 kg

DRUGS (5)
  1. LEVOTHYROXINE SODIUM [Concomitant]
     Indication: BLOOD THYROID STIMULATING HORMONE DECREASED
     Dosage: 100 UG, DAILY
     Dates: start: 20040411
  2. HYDROCORTISONE [Concomitant]
     Indication: BLOOD CORTICOTROPHIN DECREASED
     Dosage: 30 MG, DAILY
     Dates: start: 20020411
  3. SOMATROPIN [Suspect]
     Indication: GROWTH HORMONE DEFICIENCY
     Dosage: 0.2 MG, 1X/DAY 7 INJECTIONS PER WEEK
     Dates: start: 20030910
  4. SOMATROPIN [Suspect]
     Indication: HYPOPITUITARISM
  5. LEVOTHYROXINE SODIUM [Concomitant]
     Indication: PRIMARY HYPOTHYROIDISM

REACTIONS (1)
  - INTESTINAL ISCHAEMIA [None]
